FAERS Safety Report 20603628 (Version 1)
Quarter: 2022Q1

REPORT INFORMATION
  Report Type: Spontaneous
  Country: US (occurrence: None)
  Receive Date: 20220316
  Receipt Date: 20220316
  Transmission Date: 20220423
  Serious: No
  Sender: FDA-Public Use
  Company Number: None

PATIENT
  Age: 74 Year
  Sex: Male
  Weight: 62.60 kg

DRUGS (2)
  1. EVUSHELD [Suspect]
     Active Substance: CILGAVIMAB\TIXAGEVIMAB
     Indication: Prophylaxis
     Dosage: FREQUENCY : ONCE;?
     Route: 030
     Dates: start: 20220211, end: 20220211
  2. EVUSHELD [Suspect]
     Active Substance: CILGAVIMAB\TIXAGEVIMAB

REACTIONS (4)
  - Headache [None]
  - Chills [None]
  - Tinnitus [None]
  - Drug ineffective [None]

NARRATIVE: CASE EVENT DATE: 20220311
